FAERS Safety Report 20668528 (Version 1)
Quarter: 2022Q2

REPORT INFORMATION
  Report Type: Spontaneous
  Country: US (occurrence: None)
  Receive Date: 20220402
  Receipt Date: 20220402
  Transmission Date: 20220720
  Serious: No
  Sender: FDA-Public Use
  Company Number: None

PATIENT
  Age: 57 Year
  Sex: Male

DRUGS (3)
  1. GONADORELIN ACETATE [Suspect]
     Active Substance: GONADORELIN ACETATE
     Indication: Testicular atrophy
     Dosage: OTHER FREQUENCY : TWICE WEEKLY;?
     Route: 058
     Dates: start: 20211206
  2. CELEBREX [Concomitant]
     Active Substance: CELECOXIB
  3. TESTOSTERONE [Concomitant]
     Active Substance: TESTOSTERONE

REACTIONS (8)
  - Chills [None]
  - Pyrexia [None]
  - Dizziness [None]
  - Dyspnoea [None]
  - Injection site swelling [None]
  - Injection site erythema [None]
  - Recalled product [None]
  - Recalled product administered [None]

NARRATIVE: CASE EVENT DATE: 20220310
